FAERS Safety Report 9065685 (Version 1)
Quarter: 2013Q1

REPORT INFORMATION
  Report Type: Spontaneous
  Country: CN (occurrence: CN)
  Receive Date: 20130214
  Receipt Date: 20130214
  Transmission Date: 20140127
  Serious: Yes (Other)
  Sender: FDA-Public Use
  Company Number: CN-CELGENEUS-035-21660-13020459

PATIENT
  Age: 66 Year
  Sex: Male

DRUGS (2)
  1. ABRAXANE [Suspect]
     Indication: ADENOCARCINOMA GASTRIC
     Route: 041
  2. CISPLATIN [Concomitant]
     Indication: ADENOCARCINOMA GASTRIC
     Route: 065

REACTIONS (3)
  - Liver injury [Unknown]
  - Neutropenia [Unknown]
  - Thrombocytopenia [Unknown]
